FAERS Safety Report 6975407-9 (Version None)
Quarter: 2010Q3

REPORT INFORMATION
  Report Type: 
  Country: None (occurrence: None)
  Receive Date: 20100910
  Receipt Date: 20090325
  Transmission Date: 20110219
  Serious: No
  Sender: FDA-Public Use
  Company Number: US-WYE-H08712909

PATIENT
  Sex: Male
  Weight: 108.96 kg

DRUGS (2)
  1. PRISTIQ [Suspect]
     Indication: DEPRESSION
     Route: 048
     Dates: start: 20080601
  2. PRISTIQ [Suspect]
     Indication: PAIN

REACTIONS (1)
  - ERECTILE DYSFUNCTION [None]
